FAERS Safety Report 7325358-5 (Version None)
Quarter: 2011Q1

REPORT INFORMATION
  Report Type: 
  Country: None (occurrence: None)
  Receive Date: 20110218
  Receipt Date: 20110210
  Transmission Date: 20110831
  Serious: Yes (Hospitalization, Other)
  Sender: FDA-Public Use
  Company Number: JHP201100032

PATIENT
  Age: 58 Year
  Sex: Female

DRUGS (14)
  1. ARVA (LEFLUNOMIDE) [Suspect]
     Dosage: 100 MG, ORAL
     Route: 048
     Dates: start: 20101117
  2. AMANTADINE HCL [Concomitant]
  3. MIOREL (THIOCOLCHICOSIDE) [Concomitant]
  4. XANAX [Concomitant]
  5. TAMSULOSIN HCL [Concomitant]
  6. LIORESAL [Concomitant]
  7. PARACETAMOL (PARACETAMOL) [Concomitant]
  8. DEROXAL (PAROXETINE HYDROCHLORIDE) [Concomitant]
  9. NOCTRAN 10 (ACEPROMAZINE, ACEPROMETAZINE, CLORAZEPATE DIPOTASSIUM) [Concomitant]
  10. SMECTA (GLUCOSE MONOHYDRATE, SACCHARIN SODIUM, SMECTITE, VANILLIN) [Concomitant]
  11. ULRTA-LEVURE (SACCHAROMYCES BOULARDII) [Concomitant]
  12. DANTRIUM [Suspect]
     Dosage: 1 DF, TID, ORAL
     Route: 048
     Dates: start: 20091001, end: 20110101
  13. DITROPAN [Concomitant]
  14. ERCEFURYL (NIFUROXAZIDE) [Concomitant]

REACTIONS (4)
  - ACUTE HEPATIC FAILURE [None]
  - SEPSIS [None]
  - PULMONARY EMBOLISM [None]
  - HEPATITIS ACUTE [None]
